FAERS Safety Report 8808066 (Version 1)
Quarter: 2012Q4

REPORT INFORMATION
  Report Type: Report from Study
  Country: BR (occurrence: BR)
  Receive Date: 20120926
  Receipt Date: 20120926
  Transmission Date: 20130627
  Serious: Yes (Death)
  Sender: FDA-Public Use
  Company Number: BR-US-EMD SERONO, INC.-7162667

PATIENT
  Age: 28 Year
  Sex: Female

DRUGS (8)
  1. REBIF [Suspect]
     Indication: MULTIPLE SCLEROSIS
     Dates: start: 20120315, end: 20120826
  2. SEROQUEL [Concomitant]
     Indication: PSYCHOTHERAPY
  3. AMATO [Concomitant]
     Indication: CONVULSION
  4. CYMBALTA [Concomitant]
     Indication: ANTIDEPRESSANT THERAPY
  5. AMITRIPTYLINE [Concomitant]
     Indication: ANTIDEPRESSANT THERAPY
  6. TRAMAL [Concomitant]
     Indication: ANALGESIC THERAPY
  7. ARPADOL (HARPAGOSIDE) [Concomitant]
     Indication: ANTIINFLAMMATORY THERAPY
  8. CORTICOSTEROID [Concomitant]
     Indication: PRODUCT USED FOR UNKNOWN INDICATION

REACTIONS (1)
  - Cardio-respiratory arrest [Fatal]
